FAERS Safety Report 8518584-0 (Version None)
Quarter: 2012Q3

REPORT INFORMATION
  Report Type: 
  Country: None (occurrence: None)
  Receive Date: 20120718
  Receipt Date: 20120531
  Transmission Date: 20120928
  Serious: Yes (Other)
  Sender: FDA-Public Use
  Company Number: US-BRISTOL-MYERS SQUIBB COMPANY-16651069

PATIENT
  Age: 56 Year
  Sex: Male
  Weight: 84 kg

DRUGS (7)
  1. NEXIUM [Concomitant]
  2. COUMADIN [Suspect]
     Indication: PULMONARY THROMBOSIS
     Dosage: TABS
     Route: 048
     Dates: start: 20070101, end: 20110202
  3. LORTAB [Concomitant]
  4. PERCOCET [Concomitant]
  5. VALIUM [Concomitant]
  6. NUVIGIL [Concomitant]
     Indication: SLEEP APNOEA SYNDROME
     Dosage: TABS
  7. VIAGRA [Suspect]
     Indication: ERECTILE DYSFUNCTION
     Dosage: TABS
     Route: 048
     Dates: start: 20080101

REACTIONS (1)
  - HAEMORRHAGIC STROKE [None]
